FAERS Safety Report 17534065 (Version 2)
Quarter: 2020Q2

REPORT INFORMATION
  Report Type: Spontaneous
  Country: PL (occurrence: PL)
  Receive Date: 20200312
  Receipt Date: 20200529
  Transmission Date: 20200713
  Serious: Yes (Other)
  Sender: FDA-Public Use
  Company Number: PL-PFIZER INC-2020105472

PATIENT
  Age: 47 Year
  Sex: Female

DRUGS (6)
  1. CYCLOSPORIN A [Concomitant]
     Active Substance: CYCLOSPORINE
     Indication: OPTIC NEUROPATHY
     Dosage: UNK (14-WEEK THERAPY)
  2. METHYLPREDNISOLONE. [Suspect]
     Active Substance: METHYLPREDNISOLONE
     Dosage: 125 MG, UNK (PRETREATMENT)
  3. METHYLPREDNISOLONE. [Suspect]
     Active Substance: METHYLPREDNISOLONE
     Dosage: 250 MG, UNK (PRETREATMENT)
  4. THYROXINE [Concomitant]
     Active Substance: LEVOTHYROXINE
     Dosage: UNK
  5. METHYLPREDNISOLONE. [Suspect]
     Active Substance: METHYLPREDNISOLONE
     Indication: BASEDOW^S DISEASE
     Dosage: UNK (AFTER 3-4 COURSES)
  6. METHYLPREDNISOLONE. [Suspect]
     Active Substance: METHYLPREDNISOLONE
     Indication: ENDOCRINE OPHTHALMOPATHY
     Dosage: UNK (METHYLPREDNISOLONE TO A TOTAL DOSE 11 G, 14-WEEK THERAPY)

REACTIONS (2)
  - Optic neuropathy [Recovering/Resolving]
  - Drug ineffective [Unknown]
